FAERS Safety Report 21487305 (Version 2)
Quarter: 2023Q2

REPORT INFORMATION
  Report Type: Spontaneous
  Country: US (occurrence: US)
  Receive Date: 20221020
  Receipt Date: 20230607
  Transmission Date: 20230722
  Serious: Yes (Other)
  Sender: FDA-Public Use
  Company Number: US-BRISTOL-MYERS SQUIBB COMPANY-2022-124448

PATIENT
  Age: 59 Year
  Sex: Male
  Weight: 160.12 kg

DRUGS (2)
  1. REVLIMID [Suspect]
     Active Substance: LENALIDOMIDE
     Indication: Plasma cell myeloma
     Dosage: 2W, 1W OFF
     Route: 048
  2. REVLIMID [Suspect]
     Active Substance: LENALIDOMIDE
     Dosage: 14D ON 7D OFF
     Route: 048
     Dates: start: 20221003

REACTIONS (6)
  - Fatigue [Recovered/Resolved]
  - Dyspnoea [Unknown]
  - Contusion [Recovered/Resolved]
  - Haemorrhage [Recovered/Resolved]
  - Diarrhoea [Recovered/Resolved]
  - Off label use [Unknown]
